FAERS Safety Report 20077938 (Version 2)
Quarter: 2022Q1

REPORT INFORMATION
  Report Type: Spontaneous
  Country: ES (occurrence: ES)
  Receive Date: 20211116
  Receipt Date: 20220103
  Transmission Date: 20220423
  Serious: Yes (Life-Threatening, Hospitalization, Other)
  Sender: FDA-Public Use
  Company Number: ES-MLMSERVICE-20211101-3196863-1

PATIENT
  Age: 17 Year
  Sex: Male

DRUGS (1)
  1. CLOZAPINE [Suspect]
     Active Substance: CLOZAPINE
     Indication: Psychotic disorder

REACTIONS (3)
  - Pericarditis [Recovered/Resolved]
  - Pericardial effusion [Recovered/Resolved]
  - Cardiac tamponade [Recovered/Resolved]
